FAERS Safety Report 8263088 (Version 40)
Quarter: 2015Q4

REPORT INFORMATION
  Report Type: Report from Study
  Country: CA (occurrence: CA)
  Receive Date: 20111125
  Receipt Date: 20151213
  Transmission Date: 20160305
  Serious: Yes (Death, Other)
  Sender: FDA-Public Use
  Company Number: PHHY2011CA19697

PATIENT
  Age: 62 Year
  Sex: Male

DRUGS (2)
  1. SANDOSTATIN LAR DEPOT [Suspect]
     Active Substance: OCTREOTIDE ACETATE
     Indication: CARCINOID TUMOUR
     Dosage: 30 MG, QMO (EVERY 4 WEEKS)
     Route: 030
     Dates: start: 20110302
  2. SANDOSTATIN LAR DEPOT [Suspect]
     Active Substance: OCTREOTIDE ACETATE
     Dosage: 40 MG, QMO (EVERY 4 WEEKS)
     Route: 030
     Dates: end: 20151113

REACTIONS (64)
  - Injury associated with device [Recovered/Resolved]
  - Hepatic failure [Unknown]
  - Nasal oedema [Unknown]
  - Post procedural complication [Unknown]
  - Traumatic haemorrhage [Recovered/Resolved]
  - Sciatica [Unknown]
  - Back pain [Recovered/Resolved]
  - Procedural complication [Unknown]
  - Bile duct stone [Unknown]
  - Constipation [Unknown]
  - Haematuria [Recovered/Resolved]
  - Hepatic lesion [Unknown]
  - Malignant neoplasm progression [Recovering/Resolving]
  - Lacrimation increased [Unknown]
  - Musculoskeletal pain [Unknown]
  - Skin warm [Unknown]
  - Blood pressure abnormal [Unknown]
  - Laboratory test abnormal [Unknown]
  - Abdominal pain upper [Recovered/Resolved]
  - Dysuria [Unknown]
  - Pain in extremity [Recovered/Resolved]
  - Neoplasm [Recovering/Resolving]
  - Cholelithiasis [Unknown]
  - Flank pain [Recovered/Resolved]
  - Dry eye [Unknown]
  - Decreased appetite [Unknown]
  - Nasal cyst [Unknown]
  - Haemorrhoids [Unknown]
  - Haematochezia [Recovered/Resolved]
  - Blood pressure diastolic decreased [Unknown]
  - Blood pressure increased [Unknown]
  - Fluid retention [Unknown]
  - Blood pressure systolic increased [Unknown]
  - Contusion [Unknown]
  - Rash [Unknown]
  - Faeces discoloured [Unknown]
  - Death [Fatal]
  - Thrombosis [Unknown]
  - Nephrolithiasis [Unknown]
  - Tumour compression [Unknown]
  - Oropharyngeal pain [Unknown]
  - Gastrointestinal motility disorder [Unknown]
  - Malaise [Unknown]
  - Abdominal discomfort [Unknown]
  - Diarrhoea [Recovering/Resolving]
  - Haematuria [Unknown]
  - Asthenia [Unknown]
  - Blood creatinine increased [Unknown]
  - Abdominal pain [Recovering/Resolving]
  - Dry skin [Unknown]
  - Pollakiuria [Unknown]
  - Injection site pain [Recovered/Resolved]
  - Flatulence [Unknown]
  - Urinary tract infection [Unknown]
  - Fungal infection [Unknown]
  - Rectal haemorrhage [Unknown]
  - Nasopharyngitis [Recovered/Resolved]
  - Nasal congestion [Unknown]
  - Productive cough [Unknown]
  - Pain [Unknown]
  - Myalgia [Unknown]
  - Weight decreased [Unknown]
  - Ligament sprain [Unknown]
  - Skin discolouration [Unknown]

NARRATIVE: CASE EVENT DATE: 20111029
